FAERS Safety Report 15391604 (Version 1)
Quarter: 2018Q3

REPORT INFORMATION
  Report Type: Spontaneous
  Country: US (occurrence: US)
  Receive Date: 20180910
  Receipt Date: 20180910
  Transmission Date: 20181010
  Serious: Yes (Hospitalization)
  Sender: FDA-Public Use
  Company Number: None

PATIENT
  Age: 16 Year
  Sex: Female

DRUGS (10)
  1. PULMOZYME [Concomitant]
     Active Substance: DORNASE ALFA
     Dates: start: 20180417, end: 20180910
  2. KITABIS PAK [Suspect]
     Active Substance: TOBRAMYCIN
     Indication: PROPHYLAXIS
     Route: 055
     Dates: start: 20170406, end: 20180910
  3. SPIRIVA RESPIMAT 1.25 [Concomitant]
     Dates: start: 20170921, end: 20180910
  4. LEVOCETIRIZINE 5 [Concomitant]
     Dates: start: 20170330, end: 20180910
  5. PHYTONADIONE 5 [Concomitant]
     Dates: start: 20180627, end: 20180910
  6. KITABIS PAK [Suspect]
     Active Substance: TOBRAMYCIN
     Indication: CYSTIC FIBROSIS
     Route: 055
     Dates: start: 20170406, end: 20180910
  7. KITABIS PAK [Suspect]
     Active Substance: TOBRAMYCIN
     Indication: PSEUDOMONAS INFECTION
     Route: 055
     Dates: start: 20170406, end: 20180910
  8. DRONABINOL 2.5 [Concomitant]
     Dates: start: 20180621, end: 20180910
  9. CULTURELLE [Concomitant]
     Active Substance: LACTOBACILLUS RHAMNOSUS
     Dates: start: 20180720, end: 20180910
  10. ASMANEX 220 [Concomitant]
     Dates: start: 20180417, end: 20180910

REACTIONS (2)
  - Disorientation [None]
  - Mental status changes [None]

NARRATIVE: CASE EVENT DATE: 20180828
